FAERS Safety Report 18383245 (Version 2)
Quarter: 2021Q1

REPORT INFORMATION
  Report Type: Spontaneous
  Country: US (occurrence: US)
  Receive Date: 20201014
  Receipt Date: 20210128
  Transmission Date: 20210419
  Serious: Yes (Hospitalization, Other)
  Sender: FDA-Public Use
  Company Number: US-PURDUE-USA-2020-0170629

PATIENT
  Sex: Female

DRUGS (5)
  1. OXYCODONE/ ACETAMINOPHEN TABLETS [Suspect]
     Active Substance: ACETAMINOPHEN\OXYCODONE HYDROCHLORIDE
     Indication: INJURY
     Dosage: UNK
     Route: 048
     Dates: start: 1999
  2. OXYCONTIN [Suspect]
     Active Substance: OXYCODONE HYDROCHLORIDE
     Indication: INJURY
     Dosage: UNK
     Route: 048
     Dates: start: 1999
  3. HYDROCODONE BITARTRATE AND ACETAMINOPHEN [Suspect]
     Active Substance: ACETAMINOPHEN\HYDROCODONE BITARTRATE
     Indication: INJURY
     Dosage: UNK
     Route: 048
     Dates: start: 1999
  4. DILAUDID [Suspect]
     Active Substance: HYDROMORPHONE HYDROCHLORIDE
     Indication: INJURY
     Dosage: UNK
     Route: 048
     Dates: start: 1999
  5. TRAMADOL. [Suspect]
     Active Substance: TRAMADOL
     Indication: INJURY
     Dosage: UNK
     Route: 048
     Dates: start: 1999

REACTIONS (19)
  - Deafness [Unknown]
  - Unevaluable event [Unknown]
  - Emotional distress [Unknown]
  - Drug dependence [Unknown]
  - Cardiac disorder [Unknown]
  - Learning disability [Unknown]
  - Maternal exposure during pregnancy [Recovered/Resolved]
  - Hepatitis C [Unknown]
  - Drug withdrawal syndrome neonatal [Unknown]
  - Post-traumatic stress disorder [Unknown]
  - Intervertebral disc protrusion [Unknown]
  - Migraine [Unknown]
  - Congenital anomaly [Unknown]
  - Suicide attempt [Unknown]
  - Developmental delay [Unknown]
  - Depression [Unknown]
  - Insomnia [Unknown]
  - Surgery [Unknown]
  - Head injury [Unknown]

NARRATIVE: CASE EVENT DATE: 2002
